FAERS Safety Report 9738282 (Version 2)
Quarter: 2013Q4

REPORT INFORMATION
  Report Type: Spontaneous
  Country: US (occurrence: US)
  Receive Date: 20131208
  Receipt Date: 20131208
  Transmission Date: 20140711
  Serious: No
  Sender: FDA-Public Use
  Company Number: -SAAVPROD-RENA-1001772

PATIENT
  Age: 60 Year
  Sex: Male

DRUGS (4)
  1. SEVELAMER CARBONATE [Suspect]
     Indication: HYPERPHOSPHATAEMIA
     Dosage: 2400 MG, TID (WITH EACH MEAL)
     Route: 065
  2. COLECALCIFEROL [Concomitant]
     Indication: PRODUCT USED FOR UNKNOWN INDICATION
     Dosage: UNK
     Route: 065
  3. FUROSEMIDE [Concomitant]
     Indication: PRODUCT USED FOR UNKNOWN INDICATION
     Dosage: UNK
     Route: 065
  4. WARFARIN [Concomitant]
     Indication: PRODUCT USED FOR UNKNOWN INDICATION
     Dosage: UNK
     Route: 065

REACTIONS (2)
  - Faeces discoloured [Not Recovered/Not Resolved]
  - Abnormal faeces [Not Recovered/Not Resolved]
